FAERS Safety Report 6695821-9 (Version None)
Quarter: 2010Q2

REPORT INFORMATION
  Report Type: 
  Country: None (occurrence: None)
  Receive Date: 20100423
  Receipt Date: 20100423
  Transmission Date: 20101027
  Serious: Yes (Life-Threatening, Other)
  Sender: FDA-Public Use
  Company Number: None

PATIENT
  Age: 25 Year
  Sex: Male
  Weight: 86.1834 kg

DRUGS (2)
  1. MULTAQ [Suspect]
     Indication: PROPHYLAXIS
     Dosage: 400 MG BID PO
     Route: 048
     Dates: start: 20100312, end: 20100413
  2. METOPROLOL [Concomitant]

REACTIONS (4)
  - FATIGUE [None]
  - VENTRICULAR EXTRASYSTOLES [None]
  - VENTRICULAR FIBRILLATION [None]
  - VENTRICULAR TACHYCARDIA [None]
